FAERS Safety Report 6923672-6 (Version None)
Quarter: 2010Q3

REPORT INFORMATION
  Report Type: 
  Country: None (occurrence: None)
  Receive Date: 20100813
  Receipt Date: 20100805
  Transmission Date: 20110219
  Serious: Yes (Other)
  Sender: FDA-Public Use
  Company Number: B0665770A

PATIENT
  Sex: Male

DRUGS (3)
  1. LAMICTAL [Suspect]
     Indication: CONVULSION
     Dosage: 25MG TWICE PER DAY
     Route: 048
     Dates: start: 20100209, end: 20100223
  2. GABAPENTIN [Concomitant]
     Indication: CONVULSION
     Dosage: 1800MG PER DAY
     Route: 048
  3. DEPAKENE [Concomitant]
     Indication: CONVULSION
     Dosage: 900MG PER DAY
     Route: 048

REACTIONS (6)
  - ALANINE AMINOTRANSFERASE INCREASED [None]
  - ASPARTATE AMINOTRANSFERASE INCREASED [None]
  - C-REACTIVE PROTEIN INCREASED [None]
  - PYREXIA [None]
  - RASH [None]
  - WHITE BLOOD CELL COUNT INCREASED [None]
